FAERS Safety Report 5714165-2 (Version None)
Quarter: 2008Q2

REPORT INFORMATION
  Report Type: 
  Country: None (occurrence: None)
  Receive Date: 20080423
  Receipt Date: 20070611
  Transmission Date: 20081010
  Serious: No
  Sender: FDA-Public Use
  Company Number: US-KINGPHARMUSA00001-K200700713

PATIENT

DRUGS (5)
  1. SKELAXIN [Suspect]
     Indication: INTERVERTEBRAL DISC PROTRUSION
     Dosage: 800 MG, QD
     Route: 048
     Dates: end: 20070608
  2. FENTANYL CITRATE [Concomitant]
     Indication: PAIN
     Dosage: 25 MCG, UNK
     Route: 062
     Dates: end: 20070608
  3. OXYCODONE HCL [Concomitant]
     Indication: PAIN
     Dates: end: 20070608
  4. VALIUM [Concomitant]
     Dosage: 5 MG, UNK
     Dates: end: 20070608
  5. LIDODERM [Concomitant]
     Indication: PAIN
     Dosage: UNK, UNK
     Route: 062
     Dates: end: 20070608

REACTIONS (3)
  - DYSPNOEA [None]
  - FATIGUE [None]
  - HYPERSOMNIA [None]
